FAERS Safety Report 24048219 (Version 6)
Quarter: 2025Q2

REPORT INFORMATION
  Report Type: Report from Study
  Country: JP (occurrence: JP)
  Receive Date: 20240703
  Receipt Date: 20250616
  Transmission Date: 20250717
  Serious: Yes (Hospitalization, Other)
  Sender: TAKEDA
  Company Number: JP-TAKEDA-2021TJP122609

PATIENT
  Age: 56 Year
  Sex: Female
  Weight: 42.8 kg

DRUGS (64)
  1. TEDUGLUTIDE [Suspect]
     Active Substance: TEDUGLUTIDE
     Indication: Short-bowel syndrome
  2. TEDUGLUTIDE [Suspect]
     Active Substance: TEDUGLUTIDE
  3. TEDUGLUTIDE [Suspect]
     Active Substance: TEDUGLUTIDE
  4. TEDUGLUTIDE [Suspect]
     Active Substance: TEDUGLUTIDE
  5. VONOPRAZAN FUMARATE [Concomitant]
     Active Substance: VONOPRAZAN FUMARATE
  6. STELARA [Concomitant]
     Active Substance: USTEKINUMAB
     Indication: Short-bowel syndrome
     Dosage: 90 MILLIGRAM, Q8WEEKS
  7. STELARA [Concomitant]
     Active Substance: USTEKINUMAB
     Indication: Crohn^s disease
  8. BUDESONIDE [Concomitant]
     Active Substance: BUDESONIDE
     Indication: Short-bowel syndrome
  9. BUDESONIDE [Concomitant]
     Active Substance: BUDESONIDE
     Indication: Crohn^s disease
  10. PENTASA [Concomitant]
     Active Substance: MESALAMINE
     Indication: Short-bowel syndrome
  11. PENTASA [Concomitant]
     Active Substance: MESALAMINE
     Indication: Crohn^s disease
  12. AMINO ACIDS\CARBOHYDRATES\MINERALS\SOYBEAN OIL\VITAMINS [Concomitant]
     Active Substance: AMINO ACIDS\CARBOHYDRATES\MINERALS\SOYBEAN OIL\VITAMINS
     Indication: Short-bowel syndrome
  13. AMINO ACIDS\CARBOHYDRATES\MINERALS\SOYBEAN OIL\VITAMINS [Concomitant]
     Active Substance: AMINO ACIDS\CARBOHYDRATES\MINERALS\SOYBEAN OIL\VITAMINS
     Indication: Crohn^s disease
  14. BIO-THREE [Concomitant]
     Active Substance: HERBALS
     Indication: Short-bowel syndrome
  15. BIO-THREE [Concomitant]
     Active Substance: HERBALS
     Indication: Crohn^s disease
  16. HERBALS [Concomitant]
     Active Substance: HERBALS
     Indication: Short-bowel syndrome
  17. HERBALS [Concomitant]
     Active Substance: HERBALS
     Indication: Crohn^s disease
  18. UNSPECIFIED INGREDIENT [Concomitant]
     Active Substance: UNSPECIFIED INGREDIENT
     Indication: Short-bowel syndrome
  19. SOYBEAN OIL [Concomitant]
     Active Substance: SOYBEAN OIL
     Indication: Short-bowel syndrome
  20. AMINO ACIDS\DEXTROSE\ELECTROLYTES NOS\VITAMINS [Concomitant]
     Active Substance: AMINO ACIDS\DEXTROSE\ELECTROLYTES NOS\VITAMINS
     Indication: Short-bowel syndrome
  21. SOLDEM 3A [Concomitant]
     Active Substance: CARBOHYDRATES\POTASSIUM CHLORIDE\SODIUM CHLORIDE\SODIUM LACTATE
     Indication: Short-bowel syndrome
  22. METHYLCOBALAMIN [Concomitant]
     Active Substance: METHYLCOBALAMIN
     Indication: Short-bowel syndrome
  23. AMIZET-B [Concomitant]
     Indication: Short-bowel syndrome
  24. Solita t granules no.3 [Concomitant]
     Indication: Short-bowel syndrome
  25. PREDONINE [Concomitant]
     Active Substance: PREDNISOLONE
     Indication: Short-bowel syndrome
  26. DIQUAFOSOL TETRASODIUM [Concomitant]
     Active Substance: DIQUAFOSOL TETRASODIUM
  27. HYALURONATE SODIUM [Concomitant]
     Active Substance: HYALURONATE SODIUM
  28. CEFMENOXIME HYDROCHLORIDE [Concomitant]
     Active Substance: CEFMENOXIME HYDROCHLORIDE
  29. FLUOROMETHOLONE [Concomitant]
     Active Substance: FLUOROMETHOLONE
  30. REBAMIPIDE [Concomitant]
     Active Substance: REBAMIPIDE
  31. DEXAMETHASONE [Concomitant]
     Active Substance: DEXAMETHASONE
  32. DEXAMETHASONE VALERATE [Concomitant]
     Active Substance: DEXAMETHASONE VALERATE
  33. ALFAROL [Concomitant]
     Active Substance: ALFACALCIDOL
  34. TALION [Concomitant]
  35. AZUNOL [Concomitant]
  36. BIOTIN [Concomitant]
     Active Substance: BIOTIN
  37. AZUNOL [Concomitant]
  38. ALLOID G [Concomitant]
     Active Substance: SODIUM ALGINATE
  39. HEPARINOID [Concomitant]
  40. TRANSAMIN [Concomitant]
     Active Substance: TRANEXAMIC ACID
  41. ORADOL [Concomitant]
  42. Cinal [Concomitant]
  43. GLYCOSAMINOGLYCANS [Concomitant]
     Active Substance: GLYCOSAMINOGLYCANS
  44. GLYCOSAMINOGLYCANS [Concomitant]
     Active Substance: GLYCOSAMINOGLYCANS
  45. CALONAL [Concomitant]
     Active Substance: ACETAMINOPHEN
  46. ZINC [Concomitant]
     Active Substance: ZINC
  47. SYMBICORT [Concomitant]
     Active Substance: BUDESONIDE\FORMOTEROL FUMARATE DIHYDRATE
  48. HERBALS [Concomitant]
     Active Substance: HERBALS
  49. AMITRIPTYLINE [Concomitant]
     Active Substance: AMITRIPTYLINE
  50. AVELOX [Concomitant]
     Active Substance: MOXIFLOXACIN HYDROCHLORIDE
  51. VALTREX [Concomitant]
     Active Substance: VALACYCLOVIR HYDROCHLORIDE
  52. DIFLUCORTOLONE VALERATE [Concomitant]
     Active Substance: DIFLUCORTOLONE VALERATE
  53. BETAMETHASONE DIPROPIONATE [Concomitant]
     Active Substance: BETAMETHASONE DIPROPIONATE
  54. EURODIN [Concomitant]
  55. GASSAAL [Concomitant]
  56. STELARA [Concomitant]
     Active Substance: USTEKINUMAB
     Indication: Short-bowel syndrome
  57. SKYRIZI [Concomitant]
     Active Substance: RISANKIZUMAB-RZAA
     Indication: Short-bowel syndrome
  58. NIZORAL [Concomitant]
     Active Substance: KETOCONAZOLE
  59. CLOBETASOL [Concomitant]
     Active Substance: CLOBETASOL
  60. VALACYCLOVIR HYDROCHLORIDE [Concomitant]
     Active Substance: VALACYCLOVIR HYDROCHLORIDE
  61. AMINO ACIDS\DEXTROSE\ELECTROLYTES NOS\MINERALS\VITAMINS [Concomitant]
     Active Substance: AMINO ACIDS\DEXTROSE\ELECTROLYTES NOS\MINERALS\VITAMINS
  62. CALCIUM CHLORIDE\POTASSIUM CHLORIDE\SODIUM ACETATE\SODIUM CHLORIDE [Concomitant]
     Active Substance: CALCIUM CHLORIDE\POTASSIUM CHLORIDE\SODIUM ACETATE\SODIUM CHLORIDE
  63. MOSAPRIDE CITRATE [Concomitant]
     Active Substance: MOSAPRIDE CITRATE
  64. EDOXABAN TOSYLATE [Concomitant]
     Active Substance: EDOXABAN TOSYLATE

REACTIONS (21)
  - Stoma site haemorrhage [Recovered/Resolved]
  - Crohn^s disease [Recovered/Resolved]
  - COVID-19 [Recovered/Resolved]
  - Renal impairment [Recovered/Resolved]
  - Oral discomfort [Recovering/Resolving]
  - Diarrhoea [Recovered/Resolved]
  - Puncture site erythema [Recovering/Resolving]
  - Headache [Recovered/Resolved]
  - Abdominal distension [Recovering/Resolving]
  - Vomiting [Recovered/Resolved]
  - Abdominal distension [Recovering/Resolving]
  - Vomiting [Recovered/Resolved]
  - Flatulence [Recovered/Resolved]
  - Abdominal pain [Recovering/Resolving]
  - Lymphadenitis [Recovering/Resolving]
  - Herpes virus infection [Recovering/Resolving]
  - Weight decreased [Recovering/Resolving]
  - Skin papilloma [Recovered/Resolved]
  - Seborrhoeic dermatitis [Recovering/Resolving]
  - Herpes simplex [Recovered/Resolved]
  - Eczema [Recovering/Resolving]

NARRATIVE: CASE EVENT DATE: 20211118
